FAERS Safety Report 12147353 (Version 4)
Quarter: 2016Q1

REPORT INFORMATION
  Report Type: Spontaneous
  Country: ES (occurrence: ES)
  Receive Date: 20160304
  Receipt Date: 20160322
  Transmission Date: 20160526
  Serious: Yes (Life-Threatening, Hospitalization)
  Sender: FDA-Public Use
  Company Number: ES-GE HEALTHCARE MEDICAL DIAGNOSTICS-OMPQ-E2B_00000211

PATIENT
  Age: 77 Year
  Sex: Female
  Weight: 65 kg

DRUGS (12)
  1. OMNIPAQUE [Suspect]
     Active Substance: IOHEXOL
     Indication: PULMONARY EMBOLISM
     Dosage: DOSE NOT REPORTED
     Route: 042
     Dates: start: 20160208, end: 20160208
  2. PARACETAMOL [Concomitant]
     Active Substance: ACETAMINOPHEN
  3. CRESTOR [Concomitant]
     Active Substance: ROSUVASTATIN CALCIUM
  4. SEROXAT [Concomitant]
     Active Substance: PAROXETINE HYDROCHLORIDE
  5. HIPERTENE [Concomitant]
  6. LEXATIN [Concomitant]
     Active Substance: BROMAZEPAM
  7. ADIRO [Concomitant]
     Active Substance: ASPIRIN
  8. BARNIX [Concomitant]
  9. EMCONCOR [Concomitant]
     Active Substance: BISOPROLOL FUMARATE
  10. OMNIPAQUE [Suspect]
     Active Substance: IOHEXOL
     Indication: DIAGNOSTIC PROCEDURE
  11. NEXIUM [Concomitant]
     Active Substance: ESOMEPRAZOLE MAGNESIUM
  12. SEGURIL [Concomitant]
     Active Substance: FUROSEMIDE

REACTIONS (5)
  - Aortic valve incompetence [Unknown]
  - Cardio-respiratory arrest [Recovering/Resolving]
  - Urticaria [Recovering/Resolving]
  - Anaphylactic shock [Recovering/Resolving]
  - Cardiac failure acute [Recovering/Resolving]

NARRATIVE: CASE EVENT DATE: 201602
